FAERS Safety Report 6641996-7 (Version None)
Quarter: 2010Q1

REPORT INFORMATION
  Report Type: 
  Country: None (occurrence: None)
  Receive Date: 20100319
  Receipt Date: 20100312
  Transmission Date: 20100710
  Serious: Yes (Other)
  Sender: FDA-Public Use
  Company Number: US-TEVA-209342USA

PATIENT
  Sex: Male

DRUGS (2)
  1. COPAXONE [Suspect]
     Indication: MULTIPLE SCLEROSIS
     Route: 058
     Dates: start: 20090711, end: 20090901
  2. COPAXONE [Concomitant]

REACTIONS (7)
  - CARDIAC DISORDER [None]
  - CARDIOVASCULAR DISORDER [None]
  - HOMICIDAL IDEATION [None]
  - HYPOTHERMIA [None]
  - SHOCK [None]
  - SKIN DISCOLOURATION [None]
  - SUICIDAL IDEATION [None]
